FAERS Safety Report 5177166-1 (Version None)
Quarter: 2006Q4

REPORT INFORMATION
  Report Type: 
  Country: None (occurrence: None)
  Receive Date: 20061218
  Receipt Date: 20061206
  Transmission Date: 20070319
  Serious: Yes (Other)
  Sender: FDA-Public Use
  Company Number: PHBS2006US19017

PATIENT
  Age: 72 Year
  Sex: Female

DRUGS (1)
  1. ZOMETA [Suspect]
     Indication: METASTASES TO BONE
     Dosage: UNK, QMO

REACTIONS (9)
  - BONE DISORDER [None]
  - LOCAL SWELLING [None]
  - LOOSE TOOTH [None]
  - OSTEONECROSIS [None]
  - OSTEOTOMY [None]
  - PAIN IN JAW [None]
  - TOOTH EXTRACTION [None]
  - TOOTHACHE [None]
  - TRISMUS [None]
